FAERS Safety Report 7300920-4 (Version None)
Quarter: 2011Q1

REPORT INFORMATION
  Report Type: 
  Country: None (occurrence: None)
  Receive Date: 20110218
  Receipt Date: 20110211
  Transmission Date: 20110831
  Serious: Yes (Other)
  Sender: FDA-Public Use
  Company Number: AR-B.I. PHARMACEUTICALS,INC./RIDGEFIELD-2011-DE-01063GD

PATIENT
  Age: 56 Year
  Sex: Male

DRUGS (5)
  1. QUETIAPINE [Concomitant]
     Indication: BIPOLAR II DISORDER
     Dosage: 200 MG
  2. LAMOTRIGINE [Concomitant]
     Indication: BIPOLAR II DISORDER
     Dosage: 200 MG
  3. CITALOPRAM [Concomitant]
     Indication: BIPOLAR II DISORDER
     Dosage: GRADUALLY WITHDRAWN FROM DOSE LEVEL 10 MG
  4. LITHIUM CARBONATE [Concomitant]
     Indication: BIPOLAR II DISORDER
     Dosage: 0.8 MEQ/LTS
  5. PRAMIPEXOLE [Suspect]
     Indication: BIPOLAR II DISORDER
     Dosage: STARTING DOSE  0.375 MG/DAY UPWARDLY TITRATED TO 1.25 MG/DAY IN 3 WEEKS

REACTIONS (4)
  - SLEEP ATTACKS [None]
  - FAMILY STRESS [None]
  - PATHOLOGICAL GAMBLING [None]
  - ECONOMIC PROBLEM [None]
